FAERS Safety Report 26036851 (Version 1)
Quarter: 2025Q4

REPORT INFORMATION
  Report Type: Other
  Country: US (occurrence: US)
  Receive Date: 20251112
  Receipt Date: 20251112
  Transmission Date: 20260117
  Serious: No
  Sender: PARATEK PHARMACEUTICALS
  Company Number: US-PARATEK PHARMACEUTICALS, INC.-2024PTK00374

PATIENT
  Sex: Female

DRUGS (7)
  1. OMADACYCLINE [Suspect]
     Active Substance: OMADACYCLINE
     Indication: Mycobacterium abscessus infection
     Dosage: UNK
     Route: 048
  2. OMADACYCLINE [Suspect]
     Active Substance: OMADACYCLINE
     Indication: Pneumonia bacterial
  3. AZITHROMYCIN [Suspect]
     Active Substance: AZITHROMYCIN
     Indication: Mycobacterium abscessus infection
     Route: 048
  4. AZITHROMYCIN [Suspect]
     Active Substance: AZITHROMYCIN
     Indication: Pneumonia bacterial
  5. AMIKACIN [Concomitant]
     Active Substance: AMIKACIN
     Dosage: UNK
     Route: 042
     Dates: end: 20231218
  6. IMIPENEM AND CILASTATIN [Concomitant]
     Active Substance: CILASTATIN SODIUM\IMIPENEM
     Dosage: UNK
     Route: 042
     Dates: end: 20231218
  7. TIGECYCLINE [Concomitant]
     Active Substance: TIGECYCLINE
     Dosage: UNK
     Dates: end: 20231103

REACTIONS (3)
  - Weight increased [Unknown]
  - Drug hypersensitivity [Unknown]
  - Off label use [Unknown]
